FAERS Safety Report 8028572-9 (Version None)
Quarter: 2012Q1

REPORT INFORMATION
  Report Type: 
  Country: None (occurrence: None)
  Receive Date: 20120104
  Receipt Date: 20111221
  Transmission Date: 20120608
  Serious: Yes (Hospitalization)
  Sender: FDA-Public Use
  Company Number: EU-2011-10476

PATIENT
  Sex: Male
  Weight: 89 kg

DRUGS (9)
  1. SAMSCA [Suspect]
     Indication: HYPONATRAEMIA
     Dosage: SEE IMAGE
     Route: 048
     Dates: start: 20110531, end: 20111114
  2. SAMSCA [Suspect]
     Indication: HYPONATRAEMIA
     Dosage: SEE IMAGE
     Route: 048
     Dates: start: 20111114, end: 20111203
  3. SAMSCA [Suspect]
     Indication: HYPONATRAEMIA
     Dosage: SEE IMAGE
     Route: 048
     Dates: start: 20110421, end: 20110518
  4. SAMSCA [Suspect]
     Indication: HYPONATRAEMIA
     Dosage: SEE IMAGE
     Route: 048
     Dates: start: 20111204
  5. DILTIAZEM HYDROCHLORIDE [Concomitant]
  6. NOVOLOG [Concomitant]
  7. AMITRIPTYLINE HCL [Concomitant]
  8. METFORMIN HCL [Concomitant]
  9. INSULIN LANTUS (INSULIN GLARGINE) [Concomitant]

REACTIONS (2)
  - NEOPLASM PROGRESSION [None]
  - HYPONATRAEMIA [None]
